FAERS Safety Report 17300809 (Version 1)
Quarter: 2020Q1

REPORT INFORMATION
  Report Type: Spontaneous
  Country: CH (occurrence: CH)
  Receive Date: 20200122
  Receipt Date: 20200122
  Transmission Date: 20200409
  Serious: Yes (Life-Threatening, Hospitalization)
  Sender: FDA-Public Use
  Company Number: CH-ROCHE-2519636

PATIENT
  Age: 79 Year
  Sex: Female
  Weight: 42 kg

DRUGS (6)
  1. REVLIMID [Suspect]
     Active Substance: LENALIDOMIDE
     Indication: B-CELL LYMPHOMA
     Dosage: 10 MG/TAG FUER 21 TAGE (ZYKLUS 1 BEGINN AM 05.12.19)
     Route: 048
     Dates: start: 20191205
  2. VALTREX [Concomitant]
     Active Substance: VALACYCLOVIR HYDROCHLORIDE
     Dosage: 2 TABL/TAG
     Route: 048
  3. BACTRIM [Concomitant]
     Active Substance: SULFAMETHOXAZOLE\TRIMETHOPRIM
     Dosage: 3X/WOCHE 1 TABL
     Route: 048
  4. ZYLORIC [Concomitant]
     Active Substance: ALLOPURINOL
     Dosage: 1 TABL/TAG
     Route: 048
  5. MABTHERA [Suspect]
     Active Substance: RITUXIMAB
     Indication: B-CELL LYMPHOMA
     Dosage: ABBRUCH DER INFUSION NACH CA. 50 MG ; IN TOTAL
     Route: 042
     Dates: start: 20191213, end: 20191213
  6. MABTHERA [Suspect]
     Active Substance: RITUXIMAB
     Dosage: IN TOTAL
     Route: 042
     Dates: start: 20191205, end: 20191206

REACTIONS (4)
  - Anaphylactic reaction [Recovering/Resolving]
  - Atrial fibrillation [Recovering/Resolving]
  - Cerebral ischaemia [Recovering/Resolving]
  - Circulatory collapse [Recovered/Resolved]

NARRATIVE: CASE EVENT DATE: 20191213
